FAERS Safety Report 9469741 (Version 2)
Quarter: 2013Q3

REPORT INFORMATION
  Report Type: Report from Study
  Country: US (occurrence: US)
  Receive Date: 20130822
  Receipt Date: 20130822
  Transmission Date: 20140515
  Serious: Yes (Other)
  Sender: FDA-Public Use
  Company Number: PHEH2013US005301

PATIENT
  Age: 80 Year
  Sex: Female
  Weight: 55 kg

DRUGS (6)
  1. AFINITOR [Suspect]
     Indication: BREAST CANCER
     Dosage: 10 MG, QD
     Route: 048
     Dates: start: 20130215
  2. FOSAMAX [Concomitant]
     Dosage: 5 MG,
  3. ASPIRIN [Concomitant]
     Dosage: 81 MG
  4. CALCIUM [Concomitant]
     Dosage: 500 MG,
  5. MULTIVITAMIN [Concomitant]
  6. AROMASIN [Concomitant]

REACTIONS (11)
  - Intestinal mass [Unknown]
  - Scratch [Unknown]
  - Glossodynia [Not Recovered/Not Resolved]
  - Dyspnoea [Not Recovered/Not Resolved]
  - Pruritus [Unknown]
  - Weight decreased [Unknown]
  - Decreased appetite [Unknown]
  - Blood glucose increased [Unknown]
  - Diarrhoea [Unknown]
  - Insomnia [Unknown]
  - Dry mouth [Unknown]
